FAERS Safety Report 8742409 (Version 2)
Quarter: 2012Q4

REPORT INFORMATION
  Report Type: 
  Country: CN (occurrence: CN)
  Receive Date: 20120824
  Receipt Date: 20120829
  Transmission Date: 20130627
  Serious: Yes (Other)
  Sender: FDA-Public Use
  Company Number: CN-PFIZER INC-2012205862

PATIENT
  Age: 70 Year
  Sex: Female

DRUGS (1)
  1. CORDARONE [Suspect]
     Indication: ARRHYTHMIA
     Dosage: 0.2 g, daiy
     Route: 048
     Dates: start: 20090116, end: 20090219

REACTIONS (5)
  - Atrial fibrillation [Unknown]
  - Arrhythmia supraventricular [Recovering/Resolving]
  - Atrioventricular block [Unknown]
  - Nausea [Unknown]
  - Vomiting [Unknown]
